FAERS Safety Report 23731347 (Version 2)
Quarter: 2024Q2

REPORT INFORMATION
  Report Type: Spontaneous
  Country: US (occurrence: US)
  Receive Date: 20240411
  Receipt Date: 20240423
  Transmission Date: 20240716
  Serious: Yes (Other)
  Sender: FDA-Public Use
  Company Number: US-BAYER-2024A047664

PATIENT
  Age: 46 Year
  Sex: Female

DRUGS (6)
  1. MIRENA [Suspect]
     Active Substance: LEVONORGESTREL
     Dosage: 20?G/DAY
     Route: 015
  2. MODERNA COVID-19 VACCINE [Suspect]
     Active Substance: ELASOMERAN
     Indication: COVID-19 immunisation
     Dosage: UNK
     Route: 030
     Dates: start: 20231112, end: 2024
  3. VANACOF [Suspect]
     Active Substance: CHLOPHEDIANOL HYDROCHLORIDE\DEXCHLORPHENIRAMINE MALEATE\PSEUDOEPHEDRINE HYDROCHLORIDE
     Dosage: UNK
     Dates: end: 20240311
  4. BUSPIRONE [Concomitant]
     Active Substance: BUSPIRONE HYDROCHLORIDE
     Dosage: 60 MG, BID
     Route: 048
     Dates: start: 202305, end: 2023
  5. BUSPIRONE [Concomitant]
     Active Substance: BUSPIRONE HYDROCHLORIDE
     Dosage: UNK
     Dates: start: 2023
  6. PROPRANOLOL [Concomitant]
     Active Substance: PROPRANOLOL HYDROCHLORIDE
     Dosage: 20 MG, QD
     Route: 048
     Dates: start: 202307

REACTIONS (39)
  - Vaccination failure [None]
  - Abdominal pain lower [Recovered/Resolved]
  - Back pain [Recovered/Resolved]
  - Device dislocation [Recovered/Resolved]
  - Cyst [Not Recovered/Not Resolved]
  - Uterine leiomyoma [Not Recovered/Not Resolved]
  - Oropharyngeal pain [Recovered/Resolved]
  - Rhinorrhoea [Recovered/Resolved]
  - Pain [Recovered/Resolved]
  - Breakthrough COVID-19 [None]
  - Productive cough [Recovered/Resolved]
  - Sinus pain [Not Recovered/Not Resolved]
  - Ear pain [Recovered/Resolved]
  - Anosmia [Recovered/Resolved]
  - Ageusia [Recovered/Resolved]
  - Nasal congestion [Recovered/Resolved]
  - Head discomfort [Recovered/Resolved]
  - Dizziness [Recovered/Resolved]
  - Chest pain [Recovered/Resolved]
  - Dyspnoea [Recovered/Resolved]
  - Muscle fatigue [Recovered/Resolved]
  - Limb discomfort [Recovered/Resolved]
  - Ear congestion [Recovered/Resolved]
  - Upper-airway cough syndrome [Recovered/Resolved]
  - Nasal oedema [Recovered/Resolved]
  - Dry throat [Recovered/Resolved]
  - Ear discomfort [Recovered/Resolved]
  - Hypoacusis [Recovered/Resolved]
  - Increased upper airway secretion [Recovered/Resolved]
  - Eustachian tube obstruction [Recovered/Resolved]
  - Gastrooesophageal reflux disease [Recovered/Resolved]
  - Tinnitus [Recovered/Resolved]
  - Chills [Recovered/Resolved]
  - Myalgia [Recovered/Resolved]
  - Headache [Recovered/Resolved]
  - Malaise [Recovered/Resolved]
  - Fatigue [Recovered/Resolved]
  - Urinary tract disorder [Recovered/Resolved]
  - Pyrexia [Recovered/Resolved]

NARRATIVE: CASE EVENT DATE: 20231112
